FAERS Safety Report 14206653 (Version 1)
Quarter: 2017Q4

REPORT INFORMATION
  Report Type: Spontaneous
  Country: US (occurrence: US)
  Receive Date: 20171120
  Receipt Date: 20171120
  Transmission Date: 20180321
  Serious: No
  Sender: FDA-Public Use
  Company Number: US-ENDO PHARMACEUTICALS INC-2017-003843

PATIENT
  Sex: Female
  Weight: 46.26 kg

DRUGS (1)
  1. MORPHINE SULFATE ER [Suspect]
     Active Substance: MORPHINE SULFATE
     Indication: PRODUCT USED FOR UNKNOWN INDICATION
     Dosage: UNK UNK, UNKNOWN
     Route: 065

REACTIONS (5)
  - Scratch [Unknown]
  - Diarrhoea [Unknown]
  - Allergic reaction to excipient [Unknown]
  - Dyspnoea [Unknown]
  - Pruritus [Unknown]
